FAERS Safety Report 7960320-0 (Version None)
Quarter: 2011Q4

REPORT INFORMATION
  Report Type: 
  Country: None (occurrence: None)
  Receive Date: 20111206
  Receipt Date: 20111202
  Transmission Date: 20120403
  Serious: Yes (Death)
  Sender: FDA-Public Use
  Company Number: PHHY2011JP103125

PATIENT
  Age: 38 Year
  Sex: Female

DRUGS (3)
  1. ANTEBATE [Concomitant]
     Dosage: 1 MG/KG, UNK
     Route: 061
  2. BETAMETHASONE [Concomitant]
     Dosage: 1 MG/KG, PER DAY
     Route: 048
  3. NEORAL [Suspect]
     Indication: GRAFT VERSUS HOST DISEASE IN SKIN
     Dosage: 5 MG/KG, UNK
     Route: 048

REACTIONS (2)
  - CYTOMEGALOVIRUS INFECTION [None]
  - NO THERAPEUTIC RESPONSE [None]
